FAERS Safety Report 5596498-6 (Version None)
Quarter: 2007Q4

REPORT INFORMATION
  Report Type: 
  Country: None (occurrence: None)
  Receive Date: 20071219
  Receipt Date: 20071121
  Transmission Date: 20080405
  Serious: No
  Sender: FDA-Public Use
  Company Number: US-WYE-H01441907

PATIENT
  Age: 60 Year
  Sex: Female
  Weight: 70.37 kg

DRUGS (11)
  1. TORISEL [Suspect]
     Indication: METASTATIC RENAL CELL CARCINOMA
     Dosage: INTRAVENOUS
     Route: 042
     Dates: start: 20071119
  2. ZESTRIL [Concomitant]
  3. ALBUTEROL [Concomitant]
  4. LEXAPRO [Concomitant]
  5. ATIVAN [Concomitant]
  6. ZYRTEC [Concomitant]
  7. LOPRESSOR [Concomitant]
  8. MIRALAX [Concomitant]
  9. OXYCODONE HCL [Concomitant]
  10. NEXIUM [Concomitant]
  11. ADVAIR DISKUS 100/50 [Concomitant]

REACTIONS (9)
  - BACK PAIN [None]
  - ERYTHEMA [None]
  - FATIGUE [None]
  - HYPERAESTHESIA [None]
  - INFLUENZA LIKE ILLNESS [None]
  - MUSCULOSKELETAL CHEST PAIN [None]
  - NECK PAIN [None]
  - PAIN [None]
  - RASH [None]
